FAERS Safety Report 8217337-0 (Version None)
Quarter: 2012Q1

REPORT INFORMATION
  Report Type: 
  Country: None (occurrence: None)
  Receive Date: 20120313
  Receipt Date: 20120302
  Transmission Date: 20120608
  Serious: Yes (Hospitalization)
  Sender: FDA-Public Use
  Company Number: 2008JP003666

PATIENT
  Age: 42 Year
  Sex: Female
  Weight: 88.1 kg

DRUGS (36)
  1. PAXIL [Suspect]
     Dosage: 20 MG,/D, ORAL
     Route: 048
  2. TIZANIDINE HYDROCHLORIDE [Concomitant]
  3. CELECOXIB [Suspect]
     Dosage: 200 MG, /D, ORAL
     Route: 048
     Dates: start: 20081212, end: 20081225
  4. DEPAKENE [Suspect]
     Dosage: 400 MG, /D, ORAL
     Route: 048
     Dates: start: 20080708
  5. NITRAZEPAM [Concomitant]
  6. NOVORAPID FLEXPEN (INSULIN ASPART) [Concomitant]
  7. HALOPERIDOL [Suspect]
     Indication: LUPUS NEPHRITIS
     Dosage: 0.75 MG, /D, ORAL
     Route: 048
  8. LENDORM [Concomitant]
  9. DIOVAN [Suspect]
     Dosage: 80 MG,/D, ORAL, 40 MG,/D, ORAL
     Route: 048
     Dates: end: 20070729
  10. DIOVAN [Suspect]
     Dosage: 80 MG,/D, ORAL, 40 MG,/D, ORAL
     Route: 048
     Dates: start: 20070703, end: 20090206
  11. GASCON (DIMETICONE) [Concomitant]
  12. MUCOSTA (REBAMIPIDE) [Concomitant]
  13. TACROLIMUS [Suspect]
     Indication: LUPUS NEPHRITIS
     Dosage: 3 MG,/D, ORAL
     Route: 048
     Dates: start: 20070628
  14. ALDACTONE [Suspect]
     Indication: LUPUS NEPHRITIS
     Dosage: 25 MG, /D, ORAL
     Route: 048
     Dates: end: 20070731
  15. ONEALFA (ALFACALCIDOL) [Concomitant]
  16. LOSARTAN POTASSIUM [Concomitant]
  17. LOSARTAN POTASSIUM [Concomitant]
  18. NITRAZEPAM [Concomitant]
  19. HALCION [Concomitant]
  20. SELBEX (TEPRENONE) [Concomitant]
  21. SELBEX (TEPRENONE) [Concomitant]
  22. GABAPEN (GAPAPENTIN) [Concomitant]
  23. BUMETANIDE [Suspect]
     Indication: LUPUS NEPHRITIS
     Dosage: 1 MG,/D, ORAL
     Route: 048
     Dates: start: 20070628, end: 20070719
  24. MS ONSHIPPU TAPE [Concomitant]
  25. PRIMPERAN (METCLOPRAMIDE HYDROCHLORIDE) [Concomitant]
  26. PREDNISOLONE [Suspect]
     Indication: LUPUS NEPHRITIS
     Dosage: 5 MG,/D, ORAL
     Route: 048
  27. PURESENNID (SENNOSIDE A+B) [Concomitant]
  28. NITRAZEPAM [Concomitant]
  29. ALOSENN (ACHILLEA MILLEFOLIUM, RUBIA TINCTORUM ROOT TINCTURE, SENNA AL [Concomitant]
  30. KETOPROFEN [Concomitant]
  31. VOLTAREN [Concomitant]
  32. LASIX [Suspect]
     Indication: LUPUS NEPHRITIS
     Dosage: 20 MG,/D, ORAL
     Route: 048
     Dates: end: 20070731
  33. TOLEDOMIN (MILNACIPRAN HYDROCHLORIDE) PER ORAL NOS [Suspect]
     Dosage: 100 MG,/D, ORAL
     Route: 048
     Dates: start: 20081225
  34. NOVORAPID FLEXPEN (INSULIN ASPART) [Concomitant]
  35. NOVOLOG [Concomitant]
  36. NEUROTROPIN (SMALLPOX VACCINE) [Concomitant]

REACTIONS (15)
  - ALANINE AMINOTRANSFERASE INCREASED [None]
  - CONSTIPATION [None]
  - ABDOMINAL DISTENSION [None]
  - NASOPHARYNGITIS [None]
  - ASPARTATE AMINOTRANSFERASE INCREASED [None]
  - VOMITING [None]
  - GASTROENTERITIS [None]
  - BLOOD CREATININE INCREASED [None]
  - OEDEMA [None]
  - DIABETES MELLITUS [None]
  - FIBROMYALGIA [None]
  - HEADACHE [None]
  - ABDOMINAL PAIN [None]
  - BLOOD PRESSURE DECREASED [None]
  - BLOOD URIC ACID INCREASED [None]
